FAERS Safety Report 5093872-1 (Version None)
Quarter: 2006Q3

REPORT INFORMATION
  Report Type: 
  Country: None (occurrence: None)
  Receive Date: 20060728
  Receipt Date: 20060616
  Transmission Date: 20061208
  Serious: No
  Sender: FDA-Public Use
  Company Number: 254170

PATIENT
  Age: 61 Year
  Sex: Male

DRUGS (1)
  1. LEVEMIR [Suspect]
     Indication: INSULIN-REQUIRING TYPE II DIABETES MELLITUS
     Dosage: 25 IU, QD, SUBCUTANEOUS
     Route: 058
     Dates: start: 20060301

REACTIONS (2)
  - PRURITUS [None]
  - RASH [None]
